FAERS Safety Report 5152243-X (Version None)
Quarter: 2006Q4

REPORT INFORMATION
  Report Type: 
  Country: None (occurrence: None)
  Receive Date: 20061116
  Receipt Date: 20060803
  Transmission Date: 20070319
  Serious: Yes (Other)
  Sender: FDA-Public Use
  Company Number: PHNU2006DE02701

PATIENT
  Age: 66 Year
  Sex: Female
  Weight: 85 kg

DRUGS (4)
  1. VINCRISTINE + ADRIAMYCIN + DEXAMETHASONE [Concomitant]
     Indication: MULTIPLE MYELOMA
     Route: 065
     Dates: start: 20030901, end: 20040101
  2. MELPHALAN [Concomitant]
     Dosage: 200 MG/M2, UNK
     Route: 065
     Dates: start: 20040301, end: 20040301
  3. MELPHALAN [Concomitant]
     Dosage: 200 MG/M2, UNK
     Route: 065
     Dates: start: 20040901, end: 20040901
  4. ZOMETA [Suspect]
     Indication: MULTIPLE MYELOMA
     Dosage: 4 MG, QMO
     Route: 042
     Dates: start: 20030901, end: 20060801

REACTIONS (4)
  - DENTAL TREATMENT [None]
  - DEVICE FAILURE [None]
  - ORAL SURGERY [None]
  - OSTEONECROSIS [None]
